FAERS Safety Report 7917804-0 (Version None)
Quarter: 2011Q4

REPORT INFORMATION
  Report Type: 
  Country: None (occurrence: None)
  Receive Date: 20111116
  Receipt Date: 20111003
  Transmission Date: 20120403
  Serious: Yes (Life-Threatening)
  Sender: FDA-Public Use
  Company Number: RS-ROCHE-721726

PATIENT
  Sex: Female
  Weight: 70 kg

DRUGS (8)
  1. ACTEMRA [Suspect]
     Route: 042
  2. ACTEMRA [Suspect]
     Route: 042
     Dates: start: 20080829, end: 20080829
  3. ACTEMRA [Suspect]
     Route: 042
     Dates: start: 20081024, end: 20081024
  4. ACTEMRA [Suspect]
     Route: 042
     Dates: start: 20081107, end: 20081107
  5. ACTEMRA [Suspect]
     Indication: RHEUMATOID ARTHRITIS
     Route: 042
  6. ACTEMRA [Suspect]
     Route: 042
     Dates: start: 20080929, end: 20080929
  7. ACTEMRA [Suspect]
     Dosage: PREVIOUSLY ENROLLED IN DOUBLE BLINDED CORE STUDY  WA17824, UNBLINDING REVEALED PT ON TOCILIZUMAB. LA
     Route: 042
  8. ACTEMRA [Suspect]
     Dosage: LAST DOSE PIOR TO SAE 05 JULY 2010
     Route: 042
     Dates: start: 20090511, end: 20100802

REACTIONS (4)
  - COLON CANCER STAGE II [None]
  - ILEUS [None]
  - POSTOPERATIVE ILEUS [None]
  - COLON NEOPLASM [None]
